FAERS Safety Report 7070570-6 (Version None)
Quarter: 2010Q4

REPORT INFORMATION
  Report Type: 
  Country: None (occurrence: None)
  Receive Date: 20101029
  Receipt Date: 20101025
  Transmission Date: 20110411
  Serious: Yes (Death, Other)
  Sender: FDA-Public Use
  Company Number: DK-PFIZER INC-2009290383

PATIENT
  Age: 59 Year
  Sex: Female

DRUGS (6)
  1. CHAMPIX [Suspect]
     Indication: SMOKING CESSATION THERAPY
     Dosage: UNK
     Dates: start: 20070914, end: 20071227
  2. HEXALID [Concomitant]
     Dosage: 2 MG, UNK
  3. AMLODIPINE [Concomitant]
     Indication: HYPERTENSION
     Dosage: UNK
  4. BETOLVEX [Concomitant]
     Dosage: UNK
  5. PRIMCILLIN [Concomitant]
     Indication: INFECTION
     Dosage: UNK
     Dates: start: 20071218, end: 20071226
  6. RAMIPRIL [Concomitant]
     Indication: HYPERTENSION
     Dosage: UNK
     Dates: start: 20071207

REACTIONS (10)
  - ANXIETY [None]
  - BLOOD PRESSURE INCREASED [None]
  - CIRRHOSIS ALCOHOLIC [None]
  - COMA HEPATIC [None]
  - DECREASED APPETITE [None]
  - DEPRESSION [None]
  - FATIGUE [None]
  - MENTAL DISORDER [None]
  - SUICIDAL IDEATION [None]
  - TREMOR [None]
